FAERS Safety Report 9184873 (Version 1)
Quarter: 2013Q1

REPORT INFORMATION
  Report Type: Spontaneous
  Country: US (occurrence: US)
  Receive Date: 20130325
  Receipt Date: 20130325
  Transmission Date: 20140127
  Serious: No
  Sender: FDA-Public Use
  Company Number: US-PFIZER INC-2013090984

PATIENT
  Age: 54 Year
  Sex: Female
  Weight: 53.51 kg

DRUGS (1)
  1. LEVOXYL [Suspect]
     Indication: THYROID DISORDER
     Dosage: UNK, 1X/DAY (50 MCG ON MONDAY, WEDNESDAY + FRIDAY + 75 MCG ON TUESDAY, THURSDAY, SATURDAY + SUNDAY)
     Route: 048

REACTIONS (1)
  - Hypersensitivity [Unknown]
